FAERS Safety Report 25751648 (Version 1)
Quarter: 2025Q3

REPORT INFORMATION
  Report Type: Spontaneous
  Country: US (occurrence: US)
  Receive Date: 20250902
  Receipt Date: 20250902
  Transmission Date: 20251021
  Serious: Yes (Other)
  Sender: NOVO NORDISK
  Company Number: US-NOVOPROD-1506154

PATIENT
  Age: 53 Year

DRUGS (3)
  1. OZEMPIC [Suspect]
     Active Substance: SEMAGLUTIDE
     Indication: Type 2 diabetes mellitus
     Dates: start: 202107, end: 202208
  2. OZEMPIC [Suspect]
     Active Substance: SEMAGLUTIDE
     Dates: start: 202307, end: 202308
  3. MOUNJARO [Suspect]
     Active Substance: TIRZEPATIDE
     Indication: Type 2 diabetes mellitus
     Dates: start: 202211, end: 202308

REACTIONS (4)
  - Intestinal obstruction [Not Recovered/Not Resolved]
  - Ileus [Not Recovered/Not Resolved]
  - Impaired gastric emptying [Not Recovered/Not Resolved]
  - Emotional distress [Not Recovered/Not Resolved]
